FAERS Safety Report 25571009 (Version 1)
Quarter: 2025Q3

REPORT INFORMATION
  Report Type: Spontaneous
  Country: US (occurrence: US)
  Receive Date: 20250717
  Receipt Date: 20250717
  Transmission Date: 20251021
  Serious: Yes (Hospitalization, Other)
  Sender: JOHNSON AND JOHNSON
  Company Number: US-JNJFOC-20250712357

PATIENT

DRUGS (1)
  1. DARZALEX FASPRO [Suspect]
     Active Substance: DARATUMUMAB\HYALURONIDASE-FIHJ
     Indication: Product used for unknown indication

REACTIONS (9)
  - Fall [Unknown]
  - Cerebral disorder [Unknown]
  - Drug ineffective [Unknown]
  - Neoplasm progression [Unknown]
  - Headache [Unknown]
  - Dizziness [Unknown]
  - Memory impairment [Unknown]
  - Speech disorder [Unknown]
  - Asthenia [Unknown]
